FAERS Safety Report 7792983-7 (Version None)
Quarter: 2011Q4

REPORT INFORMATION
  Report Type: 
  Country: None (occurrence: None)
  Receive Date: 20111003
  Receipt Date: 20110930
  Transmission Date: 20120403
  Serious: Yes (Life-Threatening, Hospitalization)
  Sender: FDA-Public Use
  Company Number: PHHY2011CA76237

PATIENT
  Sex: Female

DRUGS (5)
  1. LORAZEPAM [Concomitant]
  2. COGENTIN [Concomitant]
  3. CLOZAPINE [Suspect]
     Indication: SCHIZOPHRENIA
     Dosage: 300 MG HS
     Route: 048
  4. CLOZAPINE [Suspect]
     Indication: PARANOIA
     Dosage: 250 MG QM
     Route: 048
     Dates: start: 19940401, end: 20110822
  5. ESCITALOPRAM [Concomitant]

REACTIONS (6)
  - NEUROLEPTIC MALIGNANT SYNDROME [None]
  - MYALGIA [None]
  - RHABDOMYOLYSIS [None]
  - GAIT DISTURBANCE [None]
  - MALAISE [None]
  - BLOOD CREATINE PHOSPHOKINASE INCREASED [None]
